FAERS Safety Report 5831224-4 (Version None)
Quarter: 2008Q3

REPORT INFORMATION
  Report Type: 
  Country: None (occurrence: None)
  Receive Date: 20080801
  Receipt Date: 20070724
  Transmission Date: 20090109
  Serious: No
  Sender: FDA-Public Use
  Company Number: US-BRISTOL-MYERS SQUIBB COMPANY-13855044

PATIENT
  Sex: Female
  Weight: 49 kg

DRUGS (4)
  1. COUMADIN [Suspect]
     Indication: HEART RATE IRREGULAR
     Route: 048
  2. WARFARIN SODIUM [Suspect]
  3. BENICAR [Concomitant]
  4. TOPROL-XL [Concomitant]

REACTIONS (2)
  - BLUE TOE SYNDROME [None]
  - PAIN IN EXTREMITY [None]
